FAERS Safety Report 22298357 (Version 2)
Quarter: 2023Q2

REPORT INFORMATION
  Report Type: Spontaneous
  Country: US (occurrence: US)
  Receive Date: 20230509
  Receipt Date: 20230516
  Transmission Date: 20230721
  Serious: Yes (Hospitalization, Other)
  Sender: FDA-Public Use
  Company Number: US-MLMSERVICE-20230425-4250923-1

PATIENT
  Sex: Male

DRUGS (2)
  1. OLANZAPINE [Suspect]
     Active Substance: OLANZAPINE
     Indication: Decreased appetite
     Dosage: NIGHTLY
     Route: 048
  2. DEXAMETHASONE [Suspect]
     Active Substance: DEXAMETHASONE
     Indication: Fatigue
     Dosage: UNKNOWN
     Route: 048

REACTIONS (11)
  - Hyperammonaemia [Recovered/Resolved]
  - Joint stiffness [Recovered/Resolved]
  - Hallucinations, mixed [Recovered/Resolved]
  - Dizziness [Recovered/Resolved]
  - Tremor [Recovered/Resolved]
  - Off label use [Unknown]
  - Hepatic encephalopathy [Recovered/Resolved]
  - Urinary incontinence [Recovered/Resolved]
  - Delirium [Recovered/Resolved]
  - Muscle rigidity [Recovered/Resolved]
  - Confusional state [Recovered/Resolved]
